FAERS Safety Report 4650440-0 (Version None)
Quarter: 2005Q3

REPORT INFORMATION
  Report Type: 
  Country: None (occurrence: None)
  Receive Date: 20050428
  Receipt Date: 20050421
  Transmission Date: 20060218
  Serious: Yes (Hospitalization)
  Sender: FDA-Public Use
  Company Number: 213194

PATIENT
  Age: 42 Year
  Sex: Female
  Weight: 56.8 kg

DRUGS (14)
  1. XOLAIR [Suspect]
     Indication: ASTHMA
     Dosage: 375 MG, Q2W, SUBCUTANEOUS
     Route: 058
     Dates: start: 20050118, end: 20050302
  2. PREVACID [Concomitant]
  3. FORADIL [Concomitant]
  4. BUDESONIDE [Concomitant]
  5. ZYRTEC [Concomitant]
  6. SINGULAIR [Concomitant]
  7. ALBUTEROL [Concomitant]
  8. XOPENEX [Concomitant]
  9. WELLBUTRIN [Concomitant]
  10. VICODIN (HYDROCODONE BITARTRATE, ACETAMINOPHEN) [Concomitant]
  11. XANAX [Concomitant]
  12. DICLOFENAC [Concomitant]
  13. PENFOSA [Concomitant]
  14. FOLIC ACID [Concomitant]

REACTIONS (2)
  - BRONCHITIS [None]
  - PSEUDOMONAS INFECTION [None]
